FAERS Safety Report 10006399 (Version 2)
Quarter: 2014Q1

REPORT INFORMATION
  Report Type: Spontaneous
  Country: BR (occurrence: BR)
  Receive Date: 20140313
  Receipt Date: 20140313
  Transmission Date: 20141002
  Serious: Yes (Hospitalization, Other)
  Sender: FDA-Public Use
  Company Number: PHHY2014BR001299

PATIENT
  Age: 67 Year
  Sex: Female

DRUGS (1)
  1. DIOVAN [Suspect]
     Indication: HYPERTENSION
     Dosage: 1 DF (320MG), DAILY
     Route: 048

REACTIONS (8)
  - Spinal fracture [Unknown]
  - Hypertension [Unknown]
  - Hypoaesthesia [Recovered/Resolved]
  - Gait disturbance [Recovered/Resolved]
  - General physical health deterioration [Unknown]
  - Erythema [Recovered/Resolved]
  - Burning sensation [Recovered/Resolved]
  - Spinal disorder [Unknown]
